FAERS Safety Report 13026666 (Version 1)
Quarter: 2016Q4

REPORT INFORMATION
  Report Type: Spontaneous
  Country: US (occurrence: US)
  Receive Date: 20161214
  Receipt Date: 20161214
  Transmission Date: 20170207
  Serious: Yes (Other)
  Sender: FDA-Public Use
  Company Number: PHHY2016US170682

PATIENT
  Age: 74 Year
  Sex: Male

DRUGS (1)
  1. PASIREOTIDE [Suspect]
     Active Substance: PASIREOTIDE
     Indication: PITUITARY-DEPENDENT CUSHING^S SYNDROME
     Dosage: 1.2 MG, BID
     Route: 065

REACTIONS (9)
  - Adrenocortical insufficiency acute [Unknown]
  - Dizziness [Unknown]
  - Arthralgia [Unknown]
  - Diabetes mellitus [Unknown]
  - Urinary tract infection [Unknown]
  - Nephrolithiasis [Unknown]
  - Nausea [Unknown]
  - Myocardial infarction [Unknown]
  - Fatigue [Unknown]

NARRATIVE: CASE EVENT DATE: 2014
